FAERS Safety Report 11482550 (Version 1)
Quarter: 2015Q3

REPORT INFORMATION
  Report Type: Spontaneous
  Country: US (occurrence: None)
  Receive Date: 20150908
  Receipt Date: 20150908
  Transmission Date: 20151125
  Serious: No
  Sender: FDA-Public Use
  Company Number: None

PATIENT
  Age: 77 Year
  Sex: Female
  Weight: 76.2 kg

DRUGS (17)
  1. COLCHRIST [Concomitant]
  2. TROSPIUM [Suspect]
     Active Substance: TROSPIUM
     Indication: INCONTINENCE
     Dosage: 1 PILL
     Route: 048
     Dates: start: 20150903, end: 20150903
  3. QNASL [Concomitant]
     Active Substance: BECLOMETHASONE DIPROPIONATE
  4. VITAMIN D [Concomitant]
     Active Substance: CHOLECALCIFEROL
  5. TROSPIUM [Suspect]
     Active Substance: TROSPIUM
     Indication: POLLAKIURIA
     Dosage: 1 PILL
     Route: 048
     Dates: start: 20150903, end: 20150903
  6. METHOCARBAMOL. [Concomitant]
     Active Substance: METHOCARBAMOL
  7. DIOVAN [Concomitant]
     Active Substance: VALSARTAN
  8. VALSARTA [Concomitant]
  9. METHANEM [Concomitant]
  10. ALLOPURINOL. [Concomitant]
     Active Substance: ALLOPURINOL
  11. VITAMIN C [Concomitant]
     Active Substance: ASCORBIC ACID
  12. VENTOLIN [Concomitant]
     Active Substance: ALBUTEROL SULFATE
  13. ZETIA [Concomitant]
     Active Substance: EZETIMIBE
  14. TYLENOL PM [Concomitant]
     Active Substance: ACETAMINOPHEN\DIPHENHYDRAMINE
  15. ASPIRIN. [Concomitant]
     Active Substance: ASPIRIN
  16. FLOVENT [Concomitant]
     Active Substance: FLUTICASONE PROPIONATE
  17. MESTINON [Concomitant]
     Active Substance: PYRIDOSTIGMINE BROMIDE

REACTIONS (2)
  - Gastrointestinal motility disorder [None]
  - Ileostomy [None]

NARRATIVE: CASE EVENT DATE: 20150903
